FAERS Safety Report 24698237 (Version 6)
Quarter: 2025Q2

REPORT INFORMATION
  Report Type: Spontaneous
  Country: GB (occurrence: GB)
  Receive Date: 20241204
  Receipt Date: 20250506
  Transmission Date: 20250716
  Serious: Yes (Other)
  Sender: SANDOZ
  Company Number: GB-SANDOZ-SDZ2024GB099081

PATIENT
  Age: 54 Year
  Sex: Female
  Weight: 73 kg

DRUGS (1)
  1. TYRUKO [Suspect]
     Active Substance: NATALIZUMAB-SZTN
     Indication: Relapsing-remitting multiple sclerosis
     Dosage: 300 MG, Q4W
     Route: 042
     Dates: start: 202405, end: 202407

REACTIONS (11)
  - Abdominal distension [Not Recovered/Not Resolved]
  - Alopecia [Not Recovered/Not Resolved]
  - Discharge [Not Recovered/Not Resolved]
  - Pollakiuria [Not Recovered/Not Resolved]
  - Dysphagia [Not Recovered/Not Resolved]
  - JC polyomavirus test positive [Unknown]
  - Nausea [Not Recovered/Not Resolved]
  - Headache [Not Recovered/Not Resolved]
  - Fatigue [Not Recovered/Not Resolved]
  - Weight increased [Unknown]
  - Product substitution issue [Unknown]

NARRATIVE: CASE EVENT DATE: 20240501
